FAERS Safety Report 8759703 (Version 5)
Quarter: 2013Q3

REPORT INFORMATION
  Report Type: Spontaneous
  Country: JP (occurrence: JP)
  Receive Date: 20120829
  Receipt Date: 20130920
  Transmission Date: 20140515
  Serious: Yes (Hospitalization, Other)
  Sender: FDA-Public Use
  Company Number: JP-GILEAD-2012-0060460

PATIENT
  Age: 65 Year
  Sex: Female

DRUGS (3)
  1. HEPSERA [Suspect]
     Indication: HEPATITIS B
     Dosage: 10 MG, QD
     Route: 048
     Dates: end: 20120821
  2. HEPSERA [Suspect]
     Indication: CHRONIC HEPATITIS B
     Dosage: 10MG PER DAY
     Route: 048
     Dates: start: 20060927, end: 20120820
  3. ZEFIX [Concomitant]
     Indication: HEPATITIS B
     Dosage: 100MG PER DAY
     Route: 048
     Dates: start: 200012, end: 20120820

REACTIONS (10)
  - Metastases to bone [Unknown]
  - Hip fracture [Unknown]
  - Femoral neck fracture [Unknown]
  - Blood alkaline phosphatase increased [Unknown]
  - Bone pain [Recovering/Resolving]
  - Pain in extremity [Unknown]
  - Fanconi syndrome acquired [Not Recovered/Not Resolved]
  - Hypouricaemia [Unknown]
  - Hypophosphataemia [Unknown]
  - Osteomalacia [Unknown]
